FAERS Safety Report 7762094-5 (Version None)
Quarter: 2011Q3

REPORT INFORMATION
  Report Type: 
  Country: None (occurrence: None)
  Receive Date: 20110920
  Receipt Date: 20110920
  Transmission Date: 20111222
  Serious: Yes (Death, Life-Threatening, Hospitalization, Other)
  Sender: FDA-Public Use
  Company Number: None

PATIENT
  Sex: Male
  Weight: 72.574 kg

DRUGS (1)
  1. ARICEPT [Suspect]

REACTIONS (9)
  - FEELING ABNORMAL [None]
  - NAUSEA [None]
  - ASTHENIA [None]
  - CARDIAC FAILURE CONGESTIVE [None]
  - ASPIRATION [None]
  - ECONOMIC PROBLEM [None]
  - PNEUMONIA [None]
  - DEHYDRATION [None]
  - ATRIAL FIBRILLATION [None]
